FAERS Safety Report 22172185 (Version 6)
Quarter: 2024Q4

REPORT INFORMATION
  Report Type: Spontaneous
  Country: US (occurrence: US)
  Receive Date: 20230404
  Receipt Date: 20241218
  Transmission Date: 20250114
  Serious: No
  Sender: PFIZER
  Company Number: US-PFIZER INC-PV202300061662

PATIENT
  Age: 75 Year
  Sex: Female

DRUGS (1)
  1. IBRANCE [Suspect]
     Active Substance: PALBOCICLIB
     Indication: Breast cancer female
     Dosage: TAKE ONE TABLET DAILY FOR 21 DAYS, THEN HOLD FOR 7 DAYS
     Route: 048
     Dates: start: 20221118

REACTIONS (5)
  - Memory impairment [Unknown]
  - Cough [Unknown]
  - Rhinorrhoea [Unknown]
  - Aphonia [Not Recovered/Not Resolved]
  - Cognitive disorder [Unknown]
